FAERS Safety Report 5637937-1 (Version None)
Quarter: 2008Q1

REPORT INFORMATION
  Report Type: 
  Country: None (occurrence: None)
  Receive Date: 20080221
  Receipt Date: 20080207
  Transmission Date: 20080703
  Serious: Yes (Hospitalization)
  Sender: FDA-Public Use
  Company Number: 2007BI027283

PATIENT
  Age: 52 Year
  Sex: Female

DRUGS (6)
  1. AVONEX [Suspect]
     Indication: MULTIPLE SCLEROSIS
     Dosage: 30 UG; QW; IM
     Route: 030
     Dates: start: 20020226
  2. KEPPRA [Concomitant]
  3. PEPCID [Concomitant]
  4. PAXIL [Concomitant]
  5. CALCIUM [Concomitant]
  6. VITAMIN D [Concomitant]

REACTIONS (2)
  - RESPIRATORY FAILURE [None]
  - STATUS EPILEPTICUS [None]
